FAERS Safety Report 20018592 (Version 2)
Quarter: 2021Q4

REPORT INFORMATION
  Report Type: Spontaneous
  Country: US (occurrence: US)
  Receive Date: 20211101
  Receipt Date: 20211129
  Transmission Date: 20220304
  Serious: No
  Sender: FDA-Public Use
  Company Number: US-ORGANON-O2110USA000607

PATIENT
  Sex: Female

DRUGS (1)
  1. NEXPLANON [Suspect]
     Active Substance: ETONOGESTREL
     Dosage: 1 DOSAGE FORM
     Route: 059

REACTIONS (3)
  - Complication of device insertion [Not Recovered/Not Resolved]
  - Product quality issue [Unknown]
  - No adverse event [Unknown]
